FAERS Safety Report 15425321 (Version 1)
Quarter: 2018Q3

REPORT INFORMATION
  Report Type: Spontaneous
  Country: US (occurrence: US)
  Receive Date: 20180925
  Receipt Date: 20180925
  Transmission Date: 20181010
  Serious: No
  Sender: FDA-Public Use
  Company Number: US-3M-2017-US-014710

PATIENT
  Age: 60 Year
  Sex: Male

DRUGS (8)
  1. VITMAIN D [Concomitant]
  2. PERIDEX [Suspect]
     Active Substance: CHLORHEXIDINE GLUCONATE
     Indication: PERIODONTAL DISEASE
     Dosage: TWICE DAILY
     Route: 048
     Dates: start: 2007, end: 2017
  3. ZINC. [Concomitant]
     Active Substance: ZINC
  4. GARLIC. [Concomitant]
     Active Substance: GARLIC
  5. VITAMIN E [Concomitant]
     Active Substance: .ALPHA.-TOCOPHEROL
  6. FISH OIL [Concomitant]
     Active Substance: FISH OIL
  7. BETA KERATIN [Concomitant]
  8. MULITIVIAMTIN [Concomitant]

REACTIONS (1)
  - Dysgeusia [Recovering/Resolving]

NARRATIVE: CASE EVENT DATE: 201703
